FAERS Safety Report 13698482 (Version 2)
Quarter: 2017Q3

REPORT INFORMATION
  Report Type: Spontaneous
  Country: US (occurrence: US)
  Receive Date: 20170628
  Receipt Date: 20170710
  Transmission Date: 20171127
  Serious: Yes (Hospitalization)
  Sender: FDA-Public Use
  Company Number: US-BAUSCH-BL-2017-020049

PATIENT
  Age: 68 Year
  Sex: Female

DRUGS (1)
  1. TETRABENAZINE. [Suspect]
     Active Substance: TETRABENAZINE
     Indication: DYSKINESIA
     Route: 048

REACTIONS (2)
  - Hospitalisation [Recovered/Resolved]
  - Off label use [Not Recovered/Not Resolved]

NARRATIVE: CASE EVENT DATE: 201706
